FAERS Safety Report 7988517-4 (Version None)
Quarter: 2011Q4

REPORT INFORMATION
  Report Type: 
  Country: None (occurrence: None)
  Receive Date: 20111217
  Receipt Date: 20111212
  Transmission Date: 20120403
  Serious: Yes (Hospitalization)
  Sender: FDA-Public Use
  Company Number: US-VERTEX PHARMACEUTICALS INC.-AE-2011-004843

PATIENT
  Sex: Female

DRUGS (4)
  1. RIBAVIRIN [Concomitant]
     Indication: HEPATITIS C
     Route: 048
     Dates: start: 20110829
  2. PEGASYS [Concomitant]
     Indication: HEPATITIS C
     Route: 058
     Dates: start: 20110829
  3. INCIVEK [Suspect]
     Indication: HEPATITIS C
     Dates: start: 20110829, end: 20111113
  4. ANTIDEPRESSANTS [Concomitant]
     Indication: DEPRESSION

REACTIONS (5)
  - FATIGUE [None]
  - CANDIDIASIS [None]
  - DEHYDRATION [None]
  - PRURITUS [None]
  - DEPRESSION [None]
